FAERS Safety Report 5419958-7 (Version None)
Quarter: 2007Q3

REPORT INFORMATION
  Report Type: 
  Country: None (occurrence: None)
  Receive Date: 20070820
  Receipt Date: 20070808
  Transmission Date: 20080115
  Serious: Yes (Death, Life-Threatening, Hospitalization, Other)
  Sender: FDA-Public Use
  Company Number: JP-PFIZER INC-2007056737

PATIENT
  Sex: Female
  Weight: 40 kg

DRUGS (9)
  1. SULPERAZON [Suspect]
     Indication: INFECTION PROPHYLAXIS
     Route: 042
     Dates: start: 20070615, end: 20070616
  2. ALDACTONE [Suspect]
     Route: 048
  3. NEO DOPASTON [Suspect]
     Route: 048
  4. LASIX [Suspect]
     Route: 048
  5. KALGUT [Suspect]
     Route: 048
  6. CANDESARTAN CILEXETIL [Suspect]
     Route: 048
  7. DIAPAX [Suspect]
     Route: 048
  8. ASPIRIN [Concomitant]
     Route: 048
  9. MARCAINE [Concomitant]
     Dates: start: 20070615, end: 20070615

REACTIONS (2)
  - DEATH [None]
  - PSEUDOMEMBRANOUS COLITIS [None]
